FAERS Safety Report 17406999 (Version 1)
Quarter: 2020Q1

REPORT INFORMATION
  Report Type: Spontaneous
  Country: US (occurrence: US)
  Receive Date: 20200211
  Receipt Date: 20200211
  Transmission Date: 20200409
  Serious: Yes (Hospitalization)
  Sender: FDA-Public Use
  Company Number: None

PATIENT
  Age: 4 Year
  Sex: Female

DRUGS (5)
  1. EPIDIOLEX [Suspect]
     Active Substance: CANNABIDIOL
     Indication: EPILEPSY
     Route: 048
     Dates: start: 20190504
  2. DIASTAT 2.5MG RECTAL [Concomitant]
  3. VIMPAT 10MG/ML [Concomitant]
  4. LAMCITAL 25MG [Concomitant]
  5. ZONEGRAN SUSP [Concomitant]

REACTIONS (2)
  - Nasopharyngitis [None]
  - Seizure [None]

NARRATIVE: CASE EVENT DATE: 20200207
